FAERS Safety Report 5310932-8 (Version None)
Quarter: 2007Q2

REPORT INFORMATION
  Report Type: 
  Country: None (occurrence: None)
  Receive Date: 20070426
  Receipt Date: 20070426
  Transmission Date: 20071010
  Serious: Yes (Hospitalization, Other)
  Sender: FDA-Public Use
  Company Number: None

PATIENT
  Age: 60 Year
  Sex: Male
  Weight: 79 kg

DRUGS (6)
  1. CHLORPROMAZINE HCL [Suspect]
     Indication: SCHIZOPHRENIA
     Dosage: 5 TAB, PO HS
     Route: 048
  2. RANITIDINE HCL [Concomitant]
  3. SIMVASTATIN [Concomitant]
  4. TRIHEXYPHENIDYL HCL [Concomitant]
  5. ACETAMINOPHEN [Concomitant]
  6. ARIPIPRAZOLE [Concomitant]

REACTIONS (2)
  - PHARYNGOLARYNGEAL PAIN [None]
  - WHITE BLOOD CELL COUNT DECREASED [None]
